FAERS Safety Report 6248935-1 (Version None)
Quarter: 2009Q2

REPORT INFORMATION
  Report Type: 
  Country: None (occurrence: None)
  Receive Date: 20090629
  Receipt Date: 20090624
  Transmission Date: 20091009
  Serious: Yes (Death, Hospitalization, Other)
  Sender: FDA-Public Use
  Company Number: PHHO2008CH13360

PATIENT
  Sex: Female
  Weight: 83 kg

DRUGS (8)
  1. RAD 666 RAD+TAB+CMAS [Suspect]
     Indication: ENDOMETRIAL CANCER
     Dosage: 5 MG
     Route: 048
     Dates: start: 20080218, end: 20080625
  2. CAELYX [Suspect]
     Indication: ENDOMETRIAL CANCER
     Dosage: UNK
     Dates: start: 20080218, end: 20080716
  3. FRAXIPARINA [Concomitant]
  4. LYRICA [Concomitant]
     Indication: NEURALGIA
     Dosage: UNK
  5. PANTOZOL [Concomitant]
  6. HEPARIN [Concomitant]
  7. TAXOTERE [Concomitant]
     Indication: ENDOMETRIAL CANCER
  8. ARTHROTEC [Concomitant]

REACTIONS (16)
  - AGITATION [None]
  - BACK PAIN [None]
  - ERYTHEMA [None]
  - FRACTURED SACRUM [None]
  - GENERAL PHYSICAL HEALTH DETERIORATION [None]
  - HOT FLUSH [None]
  - HYPOTENSION [None]
  - MALIGNANT NEOPLASM PROGRESSION [None]
  - NAUSEA [None]
  - NEUROPATHY PERIPHERAL [None]
  - NEUTROPENIA [None]
  - OSTEORADIONECROSIS [None]
  - PALMAR-PLANTAR ERYTHRODYSAESTHESIA SYNDROME [None]
  - PIGMENTATION DISORDER [None]
  - SKIN NODULE [None]
  - STOMATITIS [None]
